FAERS Safety Report 5389069-8 (Version None)
Quarter: 2007Q3

REPORT INFORMATION
  Report Type: 
  Country: None (occurrence: None)
  Receive Date: 20070717
  Receipt Date: 20070706
  Transmission Date: 20080115
  Serious: Yes (Hospitalization)
  Sender: FDA-Public Use
  Company Number: US-JNJFOC-20070505877

PATIENT
  Sex: Female
  Weight: 67.13 kg

DRUGS (6)
  1. REMICADE [Suspect]
     Route: 042
  2. REMICADE [Suspect]
     Indication: COLITIS
     Route: 042
  3. ZOCOR [Concomitant]
  4. PRILOSEC [Concomitant]
  5. VITAMIN CAP [Concomitant]
  6. COLAZAL [Concomitant]

REACTIONS (1)
  - ATRIAL FIBRILLATION [None]
